FAERS Safety Report 15304689 (Version 5)
Quarter: 2018Q4

REPORT INFORMATION
  Report Type: Spontaneous
  Country: PL (occurrence: PL)
  Receive Date: 20180821
  Receipt Date: 20181227
  Transmission Date: 20190204
  Serious: Yes (Other)
  Sender: FDA-Public Use
  Company Number: PL-BAXTER-2018BAX021528

PATIENT
  Age: 9 Year
  Sex: Male

DRUGS (62)
  1. RITUXIMAB. [Suspect]
     Active Substance: RITUXIMAB
     Indication: POST TRANSPLANT LYMPHOPROLIFERATIVE DISORDER
     Route: 065
  2. CICLOSPORIN [Suspect]
     Active Substance: CYCLOSPORINE
     Route: 065
  3. ACICLOVIR [Suspect]
     Active Substance: ACYCLOVIR
     Indication: PRODUCT USED FOR UNKNOWN INDICATION
     Route: 065
  4. FLUDARABINE [Suspect]
     Active Substance: FLUDARABINE PHOSPHATE
     Route: 065
  5. METHOTREXATE. [Suspect]
     Active Substance: METHOTREXATE
     Indication: PROPHYLAXIS AGAINST GRAFT VERSUS HOST DISEASE
     Route: 065
  6. CICLOSPORIN [Suspect]
     Active Substance: CYCLOSPORINE
     Route: 065
  7. ACICLOVIR [Suspect]
     Active Substance: ACYCLOVIR
     Route: 065
  8. AMOXICILLIN. [Suspect]
     Active Substance: AMOXICILLIN
     Route: 065
  9. FLUDARABINE [Suspect]
     Active Substance: FLUDARABINE PHOSPHATE
     Route: 065
  10. ENDOXAN [Suspect]
     Active Substance: CYCLOPHOSPHAMIDE
     Indication: PRODUCT USED FOR UNKNOWN INDICATION
     Route: 065
  11. ENDOXAN [Suspect]
     Active Substance: CYCLOPHOSPHAMIDE
     Route: 065
  12. VORICONAZOLE. [Suspect]
     Active Substance: VORICONAZOLE
     Indication: PRODUCT USED FOR UNKNOWN INDICATION
     Dosage: UNKNOWN FREQUENCY
     Route: 065
  13. METHOTREXATE. [Suspect]
     Active Substance: METHOTREXATE
     Route: 065
  14. CICLOSPORIN [Suspect]
     Active Substance: CYCLOSPORINE
     Indication: PROPHYLAXIS AGAINST GRAFT VERSUS HOST DISEASE
     Route: 065
  15. CICLOSPORIN [Suspect]
     Active Substance: CYCLOSPORINE
     Route: 065
  16. SULFAMETHOXAZOLE, TRIMETHOPRIM [Suspect]
     Active Substance: SULFAMETHOXAZOLE\TRIMETHOPRIM
     Route: 065
  17. AMOXICILLIN. [Suspect]
     Active Substance: AMOXICILLIN
     Route: 065
  18. FLUDARABINE [Suspect]
     Active Substance: FLUDARABINE PHOSPHATE
     Route: 065
  19. FLUDARABINE [Suspect]
     Active Substance: FLUDARABINE PHOSPHATE
     Route: 065
  20. COTRIMOXAZOLE [Concomitant]
     Active Substance: SULFAMETHOXAZOLE\TRIMETHOPRIM
     Indication: INFECTION PROPHYLAXIS
     Route: 065
  21. VORICONAZOLE. [Suspect]
     Active Substance: VORICONAZOLE
     Route: 065
  22. AMPHOTERICINUM B [Suspect]
     Active Substance: AMPHOTERICIN B
     Indication: LUNG DISORDER
     Route: 065
  23. CICLOSPORIN [Suspect]
     Active Substance: CYCLOSPORINE
     Indication: STEM CELL TRANSPLANT
     Route: 065
  24. SULFAMETHOXAZOLE, TRIMETHOPRIM [Suspect]
     Active Substance: SULFAMETHOXAZOLE\TRIMETHOPRIM
     Route: 065
  25. VORICONAZOLE. [Suspect]
     Active Substance: VORICONAZOLE
     Indication: LUNG DISORDER
     Route: 065
  26. METHOTREXATE. [Suspect]
     Active Substance: METHOTREXATE
     Route: 065
  27. METHOTREXATE. [Suspect]
     Active Substance: METHOTREXATE
     Route: 065
  28. RITUXIMAB. [Suspect]
     Active Substance: RITUXIMAB
     Indication: PRODUCT USED FOR UNKNOWN INDICATION
     Route: 065
  29. SULFAMETHOXAZOLE, TRIMETHOPRIM [Suspect]
     Active Substance: SULFAMETHOXAZOLE\TRIMETHOPRIM
     Route: 065
  30. SULFAMETHOXAZOLE, TRIMETHOPRIM [Suspect]
     Active Substance: SULFAMETHOXAZOLE\TRIMETHOPRIM
     Route: 065
  31. AMOXICILLIN. [Suspect]
     Active Substance: AMOXICILLIN
     Indication: ANTIFUNGAL TREATMENT
     Route: 065
  32. FLUDARABINE [Suspect]
     Active Substance: FLUDARABINE PHOSPHATE
     Route: 065
  33. AMPHOTERICINE B, LIPOSOME [Suspect]
     Active Substance: AMPHOTERICIN B
     Route: 065
  34. ANTITHYMOCYTE IMMUNOGLOBULIN [Concomitant]
     Active Substance: THYMOCYTE IMMUNE GLOBULIN NOS
     Indication: BONE MARROW CONDITIONING REGIMEN
     Route: 065
  35. ENDOXAN [Suspect]
     Active Substance: CYCLOPHOSPHAMIDE
     Route: 065
  36. VORICONAZOLE. [Suspect]
     Active Substance: VORICONAZOLE
     Route: 065
  37. METHOTREXATE. [Suspect]
     Active Substance: METHOTREXATE
     Route: 065
  38. RITUXIMAB. [Suspect]
     Active Substance: RITUXIMAB
     Route: 065
  39. SULFAMETHOXAZOLE, TRIMETHOPRIM [Suspect]
     Active Substance: SULFAMETHOXAZOLE\TRIMETHOPRIM
     Indication: URINARY TRACT INFECTION
     Route: 065
  40. AMOXICILLIN. [Suspect]
     Active Substance: AMOXICILLIN
     Route: 065
  41. AMPHOTERICINE B, LIPOSOME [Suspect]
     Active Substance: AMPHOTERICIN B
     Indication: SYSTEMIC MYCOSIS
     Route: 065
  42. AMPHOTERICINE B, LIPOSOME [Suspect]
     Active Substance: AMPHOTERICIN B
     Route: 065
  43. VORICONAZOLE. [Suspect]
     Active Substance: VORICONAZOLE
     Indication: SYSTEMIC MYCOSIS
     Dosage: UNKNOWN FREQUENCY
     Route: 065
  44. METHOTREXATE. [Suspect]
     Active Substance: METHOTREXATE
     Indication: PRODUCT USED FOR UNKNOWN INDICATION
     Route: 065
  45. RITUXIMAB. [Suspect]
     Active Substance: RITUXIMAB
     Route: 065
  46. SULFAMETHOXAZOLE, TRIMETHOPRIM [Suspect]
     Active Substance: SULFAMETHOXAZOLE\TRIMETHOPRIM
     Indication: PRODUCT USED FOR UNKNOWN INDICATION
     Route: 065
  47. ACICLOVIR [Suspect]
     Active Substance: ACYCLOVIR
     Route: 065
  48. ACICLOVIR [Suspect]
     Active Substance: ACYCLOVIR
     Route: 065
  49. AMBISOME [Suspect]
     Active Substance: AMPHOTERICIN B
     Indication: LUNG DISORDER
     Route: 065
  50. AMPHOTERICINE B, LIPOSOME [Suspect]
     Active Substance: AMPHOTERICIN B
     Route: 065
  51. ENDOXAN [Suspect]
     Active Substance: CYCLOPHOSPHAMIDE
     Route: 065
  52. VORICONAZOLE. [Suspect]
     Active Substance: VORICONAZOLE
     Route: 065
  53. RITUXIMAB. [Suspect]
     Active Substance: RITUXIMAB
     Indication: EPSTEIN-BARR VIRUS INFECTION
     Route: 065
  54. RITUXIMAB. [Suspect]
     Active Substance: RITUXIMAB
     Route: 065
  55. ACICLOVIR [Suspect]
     Active Substance: ACYCLOVIR
     Route: 065
  56. ACICLOVIR [Suspect]
     Active Substance: ACYCLOVIR
     Route: 065
  57. AMOXICILLIN. [Suspect]
     Active Substance: AMOXICILLIN
     Route: 065
  58. AMOXICILLIN. [Suspect]
     Active Substance: AMOXICILLIN
     Route: 065
  59. FLUDARABINE [Suspect]
     Active Substance: FLUDARABINE PHOSPHATE
     Indication: PRODUCT USED FOR UNKNOWN INDICATION
     Route: 065
  60. ENDOXAN [Suspect]
     Active Substance: CYCLOPHOSPHAMIDE
     Route: 065
  61. ENDOXAN [Suspect]
     Active Substance: CYCLOPHOSPHAMIDE
     Route: 065
  62. VORICONAZOLE. [Suspect]
     Active Substance: VORICONAZOLE
     Dosage: UNKNOWN FREQUENCY
     Route: 065

REACTIONS (10)
  - Inflammatory marker increased [Unknown]
  - Lung disorder [Recovered/Resolved]
  - Decreased appetite [Unknown]
  - Leukopenia [Unknown]
  - Malabsorption [Unknown]
  - Off label use [Unknown]
  - Anaemia [Recovered/Resolved]
  - Blood creatinine increased [Unknown]
  - C-reactive protein increased [Unknown]
  - Pancytopenia [Recovered/Resolved]
